FAERS Safety Report 7854135-1 (Version None)
Quarter: 2011Q4

REPORT INFORMATION
  Report Type: 
  Country: None (occurrence: None)
  Receive Date: 20111026
  Receipt Date: 20111014
  Transmission Date: 20120403
  Serious: Yes (Hospitalization)
  Sender: FDA-Public Use
  Company Number: FR-CELGENEUS-056-50794-11091477

PATIENT
  Age: 72 Year
  Sex: Male
  Weight: 83 kg

DRUGS (7)
  1. VIDAZA [Suspect]
     Dosage: 150 MILLIGRAM
     Route: 050
     Dates: start: 20091207, end: 20110202
  2. ASPIRIN [Concomitant]
     Dosage: 75
     Route: 065
     Dates: start: 20020101
  3. ASPIRIN [Concomitant]
     Indication: HYPERTENSION
  4. ALLOPURINOL [Concomitant]
     Indication: HYPERURICAEMIA
     Dosage: 200
     Route: 065
     Dates: start: 20020101
  5. SECTRAL [Concomitant]
     Indication: HYPERTENSION
     Dosage: 200
     Route: 065
     Dates: start: 20020101
  6. VIDAZA [Suspect]
     Dosage: 150 MILLIGRAM
     Route: 050
     Dates: start: 20110616, end: 20110907
  7. ATORVASTATIN CALCIUM [Concomitant]
     Dosage: 20
     Route: 065
     Dates: start: 20020101

REACTIONS (1)
  - METASTATIC MALIGNANT MELANOMA [None]
